FAERS Safety Report 12328629 (Version 1)
Quarter: 2016Q2

REPORT INFORMATION
  Report Type: Spontaneous
  Country: US (occurrence: US)
  Receive Date: 20160503
  Receipt Date: 20160503
  Transmission Date: 20160815
  Serious: No
  Sender: FDA-Public Use
  Company Number: US-BEH-2015049720

PATIENT
  Sex: Female
  Weight: 72.1 kg

DRUGS (17)
  1. DIPHENHYDRAMINE. [Concomitant]
     Active Substance: DIPHENHYDRAMINE
  2. LIDOCAINE. [Concomitant]
     Active Substance: LIDOCAINE
  3. VERAPAMIL [Concomitant]
     Active Substance: VERAPAMIL HYDROCHLORIDE
  4. FUROSEMIDE. [Concomitant]
     Active Substance: FUROSEMIDE
  5. XARELTO [Concomitant]
     Active Substance: RIVAROXABAN
  6. CENTRUM SILVER [Concomitant]
     Active Substance: MINERALS\VITAMINS
  7. MONTELUKAST [Concomitant]
     Active Substance: MONTELUKAST SODIUM
  8. HIZENTRA [Suspect]
     Active Substance: HUMAN IMMUNOGLOBULIN G
     Indication: IMMUNODEFICIENCY COMMON VARIABLE
     Route: 058
     Dates: start: 20150309
  9. VITAMIN D [Concomitant]
     Active Substance: CHOLECALCIFEROL
  10. ACETAMINOPHEN. [Concomitant]
     Active Substance: ACETAMINOPHEN
  11. EPIPEN [Concomitant]
     Active Substance: EPINEPHRINE
  12. LEVALBUTEROL. [Concomitant]
     Active Substance: LEVALBUTEROL
  13. SPIRONOLACTONE. [Concomitant]
     Active Substance: SPIRONOLACTONE
  14. FAMOTIDINE. [Concomitant]
     Active Substance: FAMOTIDINE
  15. AZITHROMYCIN ANHYDROUS. [Concomitant]
     Active Substance: AZITHROMYCIN ANHYDROUS
  16. AMIODARONE [Concomitant]
     Active Substance: AMIODARONE
  17. CALCIUM [Concomitant]
     Active Substance: CALCIUM

REACTIONS (2)
  - Infusion site pain [Unknown]
  - Infusion site pruritus [Unknown]
